FAERS Safety Report 7637827 (Version 3)
Quarter: 2013Q3

REPORT INFORMATION
  Report Type: Spontaneous
  Country: US (occurrence: US)
  Receive Date: 20101022
  Receipt Date: 20130822
  Transmission Date: 20140515
  Serious: Yes (Hospitalization, Other)
  Sender: FDA-Public Use
  Company Number: US-JNJFOC-20100509028

PATIENT
  Age: 45 Year
  Sex: Male

DRUGS (2)
  1. LEVAQUIN [Suspect]
     Indication: SINUSITIS
     Route: 048
  2. LEVAQUIN [Suspect]
     Indication: PRODUCT USED FOR UNKNOWN INDICATION
     Route: 048

REACTIONS (4)
  - Tendonitis [Unknown]
  - Tenosynovitis [Unknown]
  - Tendon injury [Unknown]
  - Bursitis [Unknown]
